FAERS Safety Report 6692406-5 (Version None)
Quarter: 2010Q2

REPORT INFORMATION
  Report Type: 
  Country: None (occurrence: None)
  Receive Date: 20100422
  Receipt Date: 20100414
  Transmission Date: 20101027
  Serious: Yes (Life-Threatening)
  Sender: FDA-Public Use
  Company Number: PH-SANOFI-AVENTIS-2010SA021419

PATIENT
  Age: 76 Year
  Sex: Female

DRUGS (5)
  1. INSULIN GLARGINE [Suspect]
     Route: 058
     Dates: start: 20060101
  2. LOSARTAN POTASSIUM [Concomitant]
  3. SPIRONOLACTONE [Concomitant]
  4. CLOPIDOGREL [Concomitant]
  5. ALL OTHER THERAPEUTIC PRODUCTS [Concomitant]

REACTIONS (1)
  - HEPATIC NEOPLASM [None]
